FAERS Safety Report 5630993-6 (Version None)
Quarter: 2008Q1

REPORT INFORMATION
  Report Type: 
  Country: None (occurrence: None)
  Receive Date: 20080219
  Receipt Date: 20080211
  Transmission Date: 20080703
  Serious: Yes (Death)
  Sender: FDA-Public Use
  Company Number: US-PURDUE-USA_2007_0027450

PATIENT
  Age: 18 Year
  Sex: Male
  Weight: 95 kg

DRUGS (5)
  1. OXYCONTIN [Suspect]
     Indication: DRUG USE FOR UNKNOWN INDICATION
     Dosage: UNK, UNK
     Dates: start: 19991101
  2. CHLORPHENIRAMINE MALEATE [Suspect]
     Indication: DRUG USE FOR UNKNOWN INDICATION
     Dates: start: 19991101
  3. PROPOXYPHENE HYDROCHLORIDE [Suspect]
     Indication: DRUG USE FOR UNKNOWN INDICATION
     Dates: start: 19991101
  4. EPHEDRINE SUL CAP [Suspect]
     Indication: DRUG USE FOR UNKNOWN INDICATION
     Dates: start: 19991101
  5. PSEUDOEPHEDRINE HCL [Suspect]
     Indication: DRUG USE FOR UNKNOWN INDICATION
     Dates: start: 19991101

REACTIONS (2)
  - BRONCHOPNEUMONIA [None]
  - MULTIPLE DRUG OVERDOSE [None]
